FAERS Safety Report 10930093 (Version 3)
Quarter: 2015Q2

REPORT INFORMATION
  Report Type: Spontaneous
  Country: JP (occurrence: JP)
  Receive Date: 20150319
  Receipt Date: 20150423
  Transmission Date: 20150821
  Serious: Yes (Other)
  Sender: FDA-Public Use
  Company Number: JP-ASTELLAS-2015JP005619

PATIENT

DRUGS (2)
  1. FUNGUARD [Suspect]
     Active Substance: MICAFUNGIN SODIUM
     Indication: ASPERGILLUS TEST POSITIVE
  2. FUNGUARD [Suspect]
     Active Substance: MICAFUNGIN SODIUM
     Indication: BLOOD BETA-D-GLUCAN INCREASED
     Route: 042
     Dates: start: 20150226, end: 20150402

REACTIONS (1)
  - Blood potassium decreased [Not Recovered/Not Resolved]
